FAERS Safety Report 9843057 (Version 2)
Quarter: 2014Q1

REPORT INFORMATION
  Report Type: Spontaneous
  Country: ES (occurrence: ES)
  Receive Date: 20140124
  Receipt Date: 20140213
  Transmission Date: 20141002
  Serious: Yes (Death, Hospitalization)
  Sender: FDA-Public Use
  Company Number: ES-PFIZER INC-2014018936

PATIENT
  Age: 67 Year
  Sex: Male

DRUGS (7)
  1. LYRICA [Suspect]
     Dosage: UNK
     Route: 048
     Dates: start: 20130108
  2. LORAZEPAM [Suspect]
     Dosage: 1 MG, 1X/DAY
     Route: 048
     Dates: start: 20130108
  3. NALOXONE [Suspect]
     Dosage: UNK
     Route: 065
     Dates: start: 20131202
  4. OXYCODONE [Suspect]
     Dosage: UNK
     Route: 065
     Dates: start: 20131202
  5. OMEPRAZOLE [Suspect]
     Dosage: 20 MG, 2X/DAY
     Route: 048
     Dates: start: 20130108
  6. ALPHARADIN [Suspect]
     Indication: PROSTATE CANCER METASTATIC
     Dosage: UNK
     Route: 042
     Dates: start: 20130601
  7. TRYPTIZOL [Suspect]
     Dosage: 10 MG, 1X/DAY
     Route: 048
     Dates: start: 20130108

REACTIONS (7)
  - Depressed level of consciousness [Fatal]
  - Dyspnoea [Fatal]
  - Pulmonary embolism [Fatal]
  - Hypotension [Fatal]
  - Sinus tachycardia [Fatal]
  - Syncope [Fatal]
  - Hypoxia [Fatal]
